FAERS Safety Report 19953001 (Version 2)
Quarter: 2021Q4

REPORT INFORMATION
  Report Type: Spontaneous
  Country: FR (occurrence: FR)
  Receive Date: 20211013
  Receipt Date: 20211014
  Transmission Date: 20220303
  Serious: Yes (Hospitalization, Other)
  Sender: FDA-Public Use
  Company Number: None

PATIENT
  Age: 0 Year
  Sex: Male

DRUGS (2)
  1. DOXORUBICIN [Suspect]
     Active Substance: DOXORUBICIN
     Indication: Ewing^s sarcoma
     Route: 042
  2. IFOSFAMIDE [Suspect]
     Active Substance: IFOSFAMIDE
     Indication: Ewing^s sarcoma
     Route: 042

REACTIONS (3)
  - Renal failure neonatal [Recovering/Resolving]
  - Foetal growth restriction [Not Recovered/Not Resolved]
  - Oligohydramnios [Not Recovered/Not Resolved]

NARRATIVE: CASE EVENT DATE: 20210504
